FAERS Safety Report 10747654 (Version 1)
Quarter: 2015Q1

REPORT INFORMATION
  Report Type: Report from Study
  Country: DE (occurrence: DE)
  Receive Date: 20150129
  Receipt Date: 20150129
  Transmission Date: 20150721
  Serious: Yes (Death, Hospitalization)
  Sender: FDA-Public Use
  Company Number: DE-ROCHE-GNE239960

PATIENT
  Age: 89 Year
  Sex: Female
  Weight: 55.06 kg

DRUGS (1)
  1. RANIBIZUMAB [Suspect]
     Active Substance: RANIBIZUMAB
     Indication: MACULAR DEGENERATION
     Dosage: THE MOST RECENT DOSE PRIOR TO EVENT ON 06/FEB/2007
     Route: 050
     Dates: start: 20060626, end: 20070305

REACTIONS (3)
  - Respiratory failure [Unknown]
  - Cardiac failure [Unknown]
  - Bronchopneumonia [Fatal]

NARRATIVE: CASE EVENT DATE: 20070205
